FAERS Safety Report 19432568 (Version 2)
Quarter: 2021Q3

REPORT INFORMATION
  Report Type: Report from Study
  Country: US (occurrence: US)
  Receive Date: 20210618
  Receipt Date: 20210824
  Transmission Date: 20211014
  Serious: Yes (Other)
  Sender: FDA-Public Use
  Company Number: US-EMD SERONO-9244122

PATIENT
  Age: 55 Year
  Sex: Female

DRUGS (1)
  1. REBIF [Suspect]
     Active Substance: INTERFERON BETA-1A
     Indication: PRODUCT USED FOR UNKNOWN INDICATION
     Route: 058
     Dates: start: 20171129

REACTIONS (7)
  - Fatigue [Recovering/Resolving]
  - Back pain [Unknown]
  - Hysterectomy [Recovering/Resolving]
  - Balance disorder [Unknown]
  - Oophorectomy bilateral [Recovering/Resolving]
  - Frustration tolerance decreased [Unknown]
  - Hypoaesthesia [Recovering/Resolving]

NARRATIVE: CASE EVENT DATE: 2021
